FAERS Safety Report 10416508 (Version 1)
Quarter: 2014Q3

REPORT INFORMATION
  Report Type: Spontaneous
  Country: US (occurrence: US)
  Receive Date: 20140828
  Receipt Date: 20140828
  Transmission Date: 20150326
  Serious: Yes (Hospitalization)
  Sender: FDA-Public Use
  Company Number: US-GLAXOSMITHKLINE-A1086110A

PATIENT
  Sex: Female

DRUGS (3)
  1. VALTREX [Suspect]
     Active Substance: VALACYCLOVIR HYDROCHLORIDE
     Indication: OPHTHALMIC HERPES ZOSTER
     Dosage: 500MG PER DAY
     Route: 048
     Dates: start: 2004, end: 2012
  2. VALACYCLOVIR [Suspect]
     Active Substance: VALACYCLOVIR HYDROCHLORIDE
     Indication: OPHTHALMIC HERPES ZOSTER
     Dosage: 500MG PER DAY
     Route: 048
     Dates: start: 2012
  3. MULTIPLE VITAMIN [Concomitant]
     Active Substance: VITAMINS

REACTIONS (6)
  - Eye infection [Recovered/Resolved with Sequelae]
  - Herpes zoster [None]
  - Eye excision [Recovered/Resolved with Sequelae]
  - Corneal transplant [Recovered/Resolved with Sequelae]
  - Drug effect decreased [Unknown]
  - Eye disorder [Recovered/Resolved with Sequelae]

NARRATIVE: CASE EVENT DATE: 201308
